FAERS Safety Report 4757841-0 (Version None)
Quarter: 2005Q3

REPORT INFORMATION
  Report Type: 
  Country: None (occurrence: None)
  Receive Date: 20050830
  Receipt Date: 20050818
  Transmission Date: 20060218
  Serious: Yes (Hospitalization)
  Sender: FDA-Public Use
  Company Number: 2005-131810-NL

PATIENT
  Age: 15 Year
  Sex: Female

DRUGS (5)
  1. MIRTAZAPINE [Suspect]
     Dosage: 15 MG/30 MG
     Dates: start: 20040820, end: 20050314
  2. RISPERIDONE [Suspect]
     Dates: start: 20040824, end: 20040920
  3. QUETIAPINE FUMARATE [Suspect]
     Dosage: MG
     Dates: start: 20040920, end: 20041209
  4. OLANZAPINE [Concomitant]
  5. ARIPIPRAZOLE [Concomitant]

REACTIONS (3)
  - GALACTORRHOEA [None]
  - SINUS TACHYCARDIA [None]
  - WEIGHT INCREASED [None]
